FAERS Safety Report 20542361 (Version 3)
Quarter: 2022Q1

REPORT INFORMATION
  Report Type: Report from Study
  Country: US (occurrence: US)
  Receive Date: 20220302
  Receipt Date: 20220311
  Transmission Date: 20220423
  Serious: Yes (Other)
  Sender: FDA-Public Use
  Company Number: US-NOVARTISPH-NVSC2022US049031

PATIENT
  Sex: Female

DRUGS (1)
  1. TABRECTA [Suspect]
     Active Substance: CAPMATINIB
     Indication: Non-small cell lung cancer
     Dosage: 150 MG, BID
     Route: 048
     Dates: start: 20220110

REACTIONS (5)
  - Renal impairment [Unknown]
  - Kidney infection [Unknown]
  - Renal pain [Unknown]
  - Product dose omission issue [Unknown]
  - Incorrect dose administered [Unknown]
